FAERS Safety Report 14979987 (Version 1)
Quarter: 2018Q2

REPORT INFORMATION
  Report Type: Spontaneous
  Country: US (occurrence: US)
  Receive Date: 20180606
  Receipt Date: 20180606
  Transmission Date: 20180711
  Serious: No
  Sender: FDA-Public Use
  Company Number: US-ALLERGAN-1763120US

PATIENT
  Age: 36 Year
  Sex: Female

DRUGS (3)
  1. CRINONE [Suspect]
     Active Substance: PROGESTERONE
     Dosage: UNK
     Route: 067
     Dates: start: 20170928, end: 20171003
  2. CRINONE [Suspect]
     Active Substance: PROGESTERONE
     Indication: INFERTILITY
     Dosage: UNK
     Route: 067
     Dates: start: 20170928, end: 20171003
  3. METFORMIN [Concomitant]
     Active Substance: METFORMIN HYDROCHLORIDE
     Indication: INSULIN RESISTANCE
     Dosage: UNK

REACTIONS (1)
  - Drug ineffective [Unknown]

NARRATIVE: CASE EVENT DATE: 201710
